FAERS Safety Report 4682914-0 (Version None)
Quarter: 2005Q2

REPORT INFORMATION
  Report Type: 
  Country: None (occurrence: None)
  Receive Date: 20050602
  Receipt Date: 20050121
  Transmission Date: 20051028
  Serious: No
  Sender: FDA-Public Use
  Company Number: US_0502112065

PATIENT
  Age: 43 Year

DRUGS (3)
  1. CYMBALTA [Suspect]
     Indication: MAJOR DEPRESSION
     Dosage: 30 MG
     Dates: start: 20050101, end: 20050101
  2. WELLBUTRIN [Concomitant]
  3. SSRI, UNSPECIFIED [Concomitant]

REACTIONS (3)
  - AGITATION [None]
  - HYPOMANIA [None]
  - SEDATION [None]
